FAERS Safety Report 8951154 (Version 1)
Quarter: 2012Q4

REPORT INFORMATION
  Report Type: 
  Country: US (occurrence: None)
  Receive Date: 20121204
  Receipt Date: 20121204
  Transmission Date: 20130627
  Serious: Yes (Hospitalization)
  Sender: FDA-Public Use
  Company Number: None

PATIENT
  Sex: Male
  Weight: 127.2 kg

DRUGS (1)
  1. CISPLATIN [Suspect]

REACTIONS (7)
  - Somnolence [None]
  - Aggression [None]
  - Respiratory acidosis [None]
  - Hypercapnia [None]
  - Blood creatinine [None]
  - Blood creatinine increased [None]
  - Dialysis [None]
